FAERS Safety Report 7878424-X (Version None)
Quarter: 2011Q4

REPORT INFORMATION
  Report Type: 
  Country: None (occurrence: None)
  Receive Date: 20111028
  Receipt Date: 20111019
  Transmission Date: 20120403
  Serious: Yes (Hospitalization)
  Sender: FDA-Public Use
  Company Number: 2011SP049418

PATIENT
  Age: 85 Year
  Sex: Male

DRUGS (8)
  1. LEVOTHYROXINE SODIUM [Concomitant]
  2. STALEVO (STALEVO) [Suspect]
     Indication: PARKINSON'S DISEASE
     Dosage: 4 DF;QD;PO
     Route: 048
     Dates: start: 20060101
  3. PLAVIX [Concomitant]
  4. MIRTAZAPINE [Suspect]
     Indication: PRODUCT USED FOR UNKNOWN INDICATION
     Dosage: 15 MG; QD;
  5. CORDARONE (AMIDARONE HYDROCHLORIDE) [Concomitant]
     Indication: PRODUCT USED FOR UNKNOWN INDICATION
     Dosage: 1 DF;QD
  6. DEPAKENE [Suspect]
     Indication: PRODUCT USED FOR UNKNOWN INDICATION
     Dosage: 500 MG;QD;PO
     Route: 048
  7. AMLODIPINE BESYLATE [Concomitant]
  8. DUPHALAC [Concomitant]

REACTIONS (2)
  - PARKINSONIAN REST TREMOR [None]
  - DYSPHAGIA [None]
